FAERS Safety Report 16874585 (Version 2)
Quarter: 2019Q4

REPORT INFORMATION
  Report Type: Report from Study
  Country: US (occurrence: US)
  Receive Date: 20191001
  Receipt Date: 20191001
  Transmission Date: 20200122
  Serious: Yes (Hospitalization)
  Sender: FDA-Public Use
  Company Number: PHHO2019US008789

PATIENT

DRUGS (9)
  1. ASPARAGINASE [Suspect]
     Active Substance: ASPARAGINASE
     Indication: ACUTE LYMPHOCYTIC LEUKAEMIA
     Dosage: 40000 INTERNATIONAL UNIT, ONCE
     Route: 030
     Dates: start: 20190801, end: 20190806
  2. DEXAMETHASONE. [Suspect]
     Active Substance: DEXAMETHASONE
     Dosage: 8.5 MILLIGRAM, BID
     Route: 048
     Dates: start: 20190723
  3. CYTARABINE. [Suspect]
     Active Substance: CYTARABINE
     Dosage: 130.5 MILLIGRAM, QD
     Route: 042
     Dates: start: 20190820, end: 20190820
  4. INC424A [Suspect]
     Active Substance: RUXOLITINIB
     Indication: ACUTE LYMPHOCYTIC LEUKAEMIA
     Dosage: 85 MG, BID
     Route: 048
     Dates: start: 20190723, end: 20190820
  5. VINCRISTINE [Suspect]
     Active Substance: VINCRISTINE
     Indication: ACUTE LYMPHOCYTIC LEUKAEMIA
     Dosage: 2 MILLIGRAM, ONCE
     Route: 042
     Dates: start: 20190723
  6. CYTARABINE. [Suspect]
     Active Substance: CYTARABINE
     Indication: ACUTE LYMPHOCYTIC LEUKAEMIA
     Dosage: 130.5 MILLIGRAM, QD
     Route: 042
     Dates: start: 20190820, end: 20190821
  7. METHOTREXATE SODIUM. [Suspect]
     Active Substance: METHOTREXATE SODIUM
     Dosage: 15 MILLIGRAM, ONCE
     Route: 037
     Dates: start: 20190723
  8. CYTARABINE. [Suspect]
     Active Substance: CYTARABINE
     Dosage: 130.5 MILLIGRAM, QD
     Route: 042
     Dates: start: 20190822
  9. DOXORUBICIN [Suspect]
     Active Substance: DOXORUBICIN
     Indication: ACUTE LYMPHOCYTIC LEUKAEMIA
     Dosage: 43.5 MILLIGRAM, ONCE
     Route: 042
     Dates: start: 20190723

REACTIONS (2)
  - Nausea [Recovered/Resolved]
  - Vomiting [Recovered/Resolved]

NARRATIVE: CASE EVENT DATE: 20190822
